FAERS Safety Report 25759797 (Version 1)
Quarter: 2025Q3

REPORT INFORMATION
  Report Type: Spontaneous
  Country: US (occurrence: US)
  Receive Date: 20250904
  Receipt Date: 20250904
  Transmission Date: 20251021
  Serious: Yes (Other)
  Sender: SPECGX
  Company Number: US-SPECGX-T202501370

PATIENT
  Sex: Male

DRUGS (1)
  1. DEXTROAMPHETAMINE SULFATE [Suspect]
     Active Substance: DEXTROAMPHETAMINE SULFATE
     Indication: Attention deficit hyperactivity disorder
     Route: 065

REACTIONS (13)
  - Suicidal ideation [Unknown]
  - Mood swings [Unknown]
  - Anxiety [Unknown]
  - Irritability [Unknown]
  - Memory impairment [Unknown]
  - Affect lability [Unknown]
  - Palpitations [Unknown]
  - Allergic reaction to excipient [Unknown]
  - Therapeutic response changed [Unknown]
  - Suspected product quality issue [Unknown]
  - Product substitution issue [Unknown]
  - Therapeutic product effect delayed [Unknown]
  - Drug ineffective [Unknown]
